FAERS Safety Report 9117741 (Version 1)
Quarter: 2013Q1

REPORT INFORMATION
  Report Type: Report from Study
  Country: US (occurrence: US)
  Receive Date: 20130129
  Receipt Date: 20130129
  Transmission Date: 20140127
  Serious: Yes (Hospitalization, Other)
  Sender: FDA-Public Use
  Company Number: US-ABBOTT-13P-163-1036576-00

PATIENT
  Sex: Male
  Weight: 124.85 kg

DRUGS (5)
  1. HUMIRA PEN [Suspect]
     Indication: PSORIASIS
     Dosage: -JUN-2011
     Route: 058
     Dates: start: 201109
  2. HUMIRA PEN [Suspect]
     Indication: PSORIATIC ARTHROPATHY
     Route: 058
     Dates: start: 201112, end: 201112
  3. ENBREL [Suspect]
     Indication: PSORIASIS
     Dates: start: 201110, end: 201110
  4. LISINOPRIL [Concomitant]
     Indication: HYPERTENSION
  5. DIAZEPAM [Concomitant]
     Indication: INSOMNIA
     Dosage: AT BEDTIME

REACTIONS (13)
  - Sinus disorder [Recovered/Resolved]
  - Sinusitis [Recovered/Resolved]
  - Bronchitis [Recovered/Resolved]
  - Pneumonia [Recovered/Resolved]
  - Sinusitis [Recovered/Resolved]
  - Fatigue [Recovered/Resolved]
  - Pyrexia [Recovered/Resolved]
  - Psoriasis [Not Recovered/Not Resolved]
  - Scab [Not Recovered/Not Resolved]
  - Sinus headache [Recovered/Resolved]
  - Psoriasis [Recovered/Resolved]
  - Oxygen saturation decreased [Recovered/Resolved]
  - Skin haemorrhage [Not Recovered/Not Resolved]
